FAERS Safety Report 7385390-2 (Version None)
Quarter: 2011Q1

REPORT INFORMATION
  Report Type: 
  Country: None (occurrence: None)
  Receive Date: 20110330
  Receipt Date: 20110118
  Transmission Date: 20110831
  Serious: No
  Sender: FDA-Public Use
  Company Number: US-MYLANLABS-2011S1001429

PATIENT
  Sex: Male

DRUGS (1)
  1. EMSAM [Suspect]
     Dosage: QD
     Route: 062

REACTIONS (1)
  - APPLICATION SITE RASH [None]
